FAERS Safety Report 24125856 (Version 6)
Quarter: 2025Q2

REPORT INFORMATION
  Report Type: Report from Study
  Country: US (occurrence: US)
  Receive Date: 20240723
  Receipt Date: 20250618
  Transmission Date: 20250716
  Serious: Yes (Other)
  Sender: AVADEL CNS PHARMACEUTICALS, LLC
  Company Number: US-AVADEL CNS PHARMACEUTICALS, LLC-2024AVA01045

PATIENT
  Sex: Female
  Weight: 75.9 kg

DRUGS (28)
  1. LUMRYZ [Suspect]
     Active Substance: SODIUM OXYBATE
     Indication: Narcolepsy
     Route: 048
     Dates: start: 2024, end: 2024
  2. LUMRYZ [Suspect]
     Active Substance: SODIUM OXYBATE
     Indication: Cataplexy
  3. LUMRYZ [Suspect]
     Active Substance: SODIUM OXYBATE
     Indication: Narcolepsy
     Dosage: 6 G, ONCE NIGHTLY
     Route: 048
     Dates: start: 2024, end: 2024
  4. LUMRYZ [Suspect]
     Active Substance: SODIUM OXYBATE
     Indication: Cataplexy
     Route: 048
     Dates: end: 2025
  5. LUMRYZ [Suspect]
     Active Substance: SODIUM OXYBATE
     Indication: Narcolepsy
     Dosage: 7.5 G, ONCE NIGHTLY
     Route: 048
     Dates: start: 2024, end: 2024
  6. LUMRYZ [Suspect]
     Active Substance: SODIUM OXYBATE
     Indication: Cataplexy
     Route: 048
     Dates: start: 2025
  7. LUMRYZ [Suspect]
     Active Substance: SODIUM OXYBATE
     Indication: Narcolepsy
     Dosage: 9 G, ONCE NIGHTLY
     Route: 048
     Dates: start: 2024, end: 202409
  8. LUMRYZ [Suspect]
     Active Substance: SODIUM OXYBATE
     Indication: Cataplexy
  9. PROVIGIL [Suspect]
     Active Substance: MODAFINIL
     Dosage: 200 UNK, 2X/DAY (ONE OF THE DOSES IS IN THE MORNING)
  10. RITALIN [Suspect]
     Active Substance: METHYLPHENIDATE HYDROCHLORIDE
     Dosage: 5 UNK, 2X/DAY (ONE OF THE DOSES IS IN THE MORNING)
  11. MELATONIN [Concomitant]
     Active Substance: MELATONIN
  12. MELATONIN [Concomitant]
     Active Substance: MELATONIN
  13. SUNOSI [Concomitant]
     Active Substance: SOLRIAMFETOL
  14. WAKIX [Concomitant]
     Active Substance: PITOLISANT HYDROCHLORIDE
     Dosage: 35.6 MG, 1X/DAY
  15. TRAZODONE [Concomitant]
     Active Substance: TRAZODONE HYDROCHLORIDE
  16. LUNESTA [Concomitant]
     Active Substance: ESZOPICLONE
  17. LUNESTA [Concomitant]
     Active Substance: ESZOPICLONE
  18. RAMELTEON [Concomitant]
     Active Substance: RAMELTEON
  19. IMITREX [Concomitant]
     Active Substance: SUMATRIPTAN SUCCINATE
  20. ALBUTEROL [Concomitant]
     Active Substance: ALBUTEROL
  21. VITAMIN C [Concomitant]
     Active Substance: ASCORBIC ACID
  22. BACLOFEN [Concomitant]
     Active Substance: BACLOFEN
     Dosage: 5 UNK, 3X/DAY
  23. FLAXSEED [Concomitant]
     Active Substance: FLAX SEED
  24. MECLIZINE [Concomitant]
     Active Substance: MECLIZINE HYDROCHLORIDE
  25. MECLIZINE [Concomitant]
     Active Substance: MECLIZINE HYDROCHLORIDE
  26. NICOTINE TRANSDERMAL SYSTEM [Concomitant]
     Active Substance: NICOTINE
  27. OMEPRAZOLE [Concomitant]
     Active Substance: OMEPRAZOLE
     Dosage: 40 UNK, 1X/DAY
  28. PILOCARPINE [Concomitant]
     Active Substance: PILOCARPINE
     Dosage: 5 UNK, 3X/DAY

REACTIONS (19)
  - Sternal fracture [Recovering/Resolving]
  - Foot fracture [Unknown]
  - Fall [Unknown]
  - Hand fracture [Not Recovered/Not Resolved]
  - Insomnia [Not Recovered/Not Resolved]
  - Initial insomnia [Not Recovered/Not Resolved]
  - Fatigue [Not Recovered/Not Resolved]
  - Stress [Not Recovered/Not Resolved]
  - Night sweats [Not Recovered/Not Resolved]
  - Blood pressure diastolic decreased [Not Recovered/Not Resolved]
  - Feeling hot [Not Recovered/Not Resolved]
  - Behaviour disorder [Not Recovered/Not Resolved]
  - Limb injury [Unknown]
  - Somnolence [Not Recovered/Not Resolved]
  - Therapeutic response unexpected [Not Recovered/Not Resolved]
  - Drug ineffective [Not Recovered/Not Resolved]
  - Wrong technique in product usage process [Recovered/Resolved]
  - Incorrect dose administered [Recovered/Resolved]
  - Product dose omission issue [Recovered/Resolved]

NARRATIVE: CASE EVENT DATE: 20240101
